FAERS Safety Report 6896216-5 (Version None)
Quarter: 2010Q3

REPORT INFORMATION
  Report Type: 
  Country: None (occurrence: None)
  Receive Date: 20100802
  Receipt Date: 20100726
  Transmission Date: 20110219
  Serious: Yes (Congenital Anomaly)
  Sender: FDA-Public Use
  Company Number: A0872578A

PATIENT
  Sex: Male

DRUGS (12)
  1. COMBIVIR [Suspect]
     Indication: HIV INFECTION
     Dates: start: 20030306, end: 20030812
  2. VIRAMUNE [Suspect]
     Indication: HIV INFECTION
     Dates: start: 20030306, end: 20030812
  3. ALUMINUM HYDROXIDE GEL [Concomitant]
  4. AMOXICILLIN [Concomitant]
  5. CEPHALEXIN [Concomitant]
  6. FERROUS SULFATE [Concomitant]
  7. FOLIC ACID [Concomitant]
  8. HYOSCINE HBR HYT [Concomitant]
  9. METAMIZOLE SODIUM [Concomitant]
  10. METOCLOPRAMIDE [Concomitant]
  11. PARACETAMOL [Concomitant]
  12. SODIUM CHLORIDE [Concomitant]

REACTIONS (2)
  - ATRIAL SEPTAL DEFECT [None]
  - DRUG EXPOSURE DURING PREGNANCY [None]
